FAERS Safety Report 20604462 (Version 3)
Quarter: 2022Q1

REPORT INFORMATION
  Report Type: Spontaneous
  Country: IL (occurrence: IL)
  Receive Date: 20220316
  Receipt Date: 20220323
  Transmission Date: 20220423
  Serious: Yes (Death, Disabling, Other)
  Sender: FDA-Public Use
  Company Number: IL-009507513-2203ISR004203

PATIENT
  Age: 80 Year
  Sex: Female

DRUGS (9)
  1. KEYTRUDA [Suspect]
     Active Substance: PEMBROLIZUMAB
     Indication: Anaplastic thyroid cancer
     Dosage: UNK
     Dates: start: 20190514
  2. KEYTRUDA [Suspect]
     Active Substance: PEMBROLIZUMAB
     Indication: Papillary thyroid cancer
     Dosage: UNK
     Dates: start: 20210304, end: 2022
  3. KEYTRUDA [Suspect]
     Active Substance: PEMBROLIZUMAB
     Dosage: LOW FREQUENCY
     Dates: start: 2022, end: 2022
  4. MEKINIST [Suspect]
     Active Substance: TRAMETINIB DIMETHYL SULFOXIDE
     Indication: Anaplastic thyroid cancer
     Dosage: UNK
     Dates: start: 20190514, end: 202011
  5. MEKINIST [Suspect]
     Active Substance: TRAMETINIB DIMETHYL SULFOXIDE
     Indication: Papillary thyroid cancer
     Dosage: 0.5 MILLIGRAM, ONCE A DAY (QD)
     Dates: start: 2022, end: 2022
  6. TAFINLAR [Suspect]
     Active Substance: DABRAFENIB MESYLATE
     Indication: Anaplastic thyroid cancer
     Dosage: UNK
     Dates: start: 20190514, end: 202011
  7. TAFINLAR [Suspect]
     Active Substance: DABRAFENIB MESYLATE
     Indication: Papillary thyroid cancer
     Dosage: LOWER DOSE OF 75*2
     Dates: start: 2022, end: 2022
  8. ADRIAMYCIN [Suspect]
     Active Substance: DOXORUBICIN HYDROCHLORIDE
     Dosage: UNK
     Dates: start: 202111
  9. ADRIAMYCIN [Suspect]
     Active Substance: DOXORUBICIN HYDROCHLORIDE
     Dosage: LOWER DOSE
     Dates: start: 202201, end: 2022

REACTIONS (13)
  - Anaplastic thyroid cancer [Fatal]
  - Thyroidectomy [Unknown]
  - Squamous cell carcinoma of skin [Unknown]
  - Ill-defined disorder [Unknown]
  - Radiation associated pain [Unknown]
  - Radiation sickness syndrome [Unknown]
  - Malignant neoplasm progression [Unknown]
  - Limb injury [Not Recovered/Not Resolved]
  - Thyroid mass [Unknown]
  - Fistula discharge [Unknown]
  - COVID-19 [Recovered/Resolved]
  - Pneumonitis [Unknown]
  - Product use in unapproved indication [Unknown]

NARRATIVE: CASE EVENT DATE: 20200101
